FAERS Safety Report 4411275-7 (Version None)
Quarter: 2004Q2

REPORT INFORMATION
  Report Type: 
  Country: None (occurrence: None)
  Receive Date: 20040630
  Receipt Date: 20040430
  Transmission Date: 20050107
  Serious: No
  Sender: FDA-Public Use
  Company Number: 04P-163-0259251-00

PATIENT
  Age: 73 Year
  Sex: Female
  Weight: 47.1741 kg

DRUGS (7)
  1. HUMIRA [Suspect]
     Indication: RHEUMATOID ARTHRITIS
     Dosage: 40 MG, 1 IN 2 WK, SUBCUTANEOUS
     Route: 058
     Dates: start: 20030301, end: 20040116
  2. PREDNISONE [Concomitant]
  3. CLOPIDOGREL BISULFATE [Concomitant]
  4. ATENOLOL [Concomitant]
  5. TOCOPHEROL CONCENTRATE CAP [Concomitant]
  6. LORAZEPAM [Concomitant]
  7. CALCIUM CARBONATE [Concomitant]

REACTIONS (3)
  - COUGH [None]
  - SINUSITIS [None]
  - UPPER RESPIRATORY TRACT INFECTION [None]
